FAERS Safety Report 9983085 (Version 1)
Quarter: 2014Q1

REPORT INFORMATION
  Report Type: Report from Study
  Country: US (occurrence: US)
  Receive Date: 20140307
  Receipt Date: 20140307
  Transmission Date: 20141002
  Serious: No
  Sender: FDA-Public Use
  Company Number: US-ABBVIE-13P-163-1179745-00

PATIENT
  Sex: Female

DRUGS (4)
  1. HUMIRA [Suspect]
     Indication: CROHN^S DISEASE
     Dates: start: 2011, end: 201306
  2. HUMIRA [Suspect]
     Dates: start: 201306
  3. 6-MP [Suspect]
     Indication: PRODUCT USED FOR UNKNOWN INDICATION
     Dosage: ON AND OFF
     Dates: end: 201311
  4. ALLOPURINOL [Suspect]
     Indication: INFLAMMATION

REACTIONS (3)
  - White blood cell count decreased [Not Recovered/Not Resolved]
  - Inflammation [Not Recovered/Not Resolved]
  - Hepatic enzyme abnormal [Not Recovered/Not Resolved]
